FAERS Safety Report 8699769 (Version 3)
Quarter: 2012Q4

REPORT INFORMATION
  Report Type: Report from Study
  Country: US (occurrence: US)
  Receive Date: 20120802
  Receipt Date: 20120919
  Transmission Date: 20130627
  Serious: Yes (Hospitalization)
  Sender: FDA-Public Use
  Company Number: US-JNJFOC-20120712908

PATIENT
  Age: 16 Year
  Sex: Male
  Weight: 59.6 kg

DRUGS (5)
  1. REMICADE [Suspect]
     Indication: CROHN^S DISEASE
     Route: 042
     Dates: start: 20101217
  2. REMICADE [Suspect]
     Indication: CROHN^S DISEASE
     Dosage: frequency ^unknown^
     Route: 042
     Dates: start: 20100728, end: 20101217
  3. REMICADE [Suspect]
     Indication: CROHN^S DISEASE
     Route: 042
     Dates: start: 20090731, end: 20100728
  4. METHOTREXATE [Concomitant]
     Indication: CROHN^S DISEASE
     Dates: start: 20120721
  5. METHOTREXATE [Concomitant]
     Indication: CROHN^S DISEASE
     Dates: start: 20120319

REACTIONS (1)
  - Crohn^s disease [Recovered/Resolved]
